FAERS Safety Report 6243287-5 (Version None)
Quarter: 2009Q2

REPORT INFORMATION
  Report Type: 
  Country: None (occurrence: None)
  Receive Date: 20090622
  Receipt Date: 20090622
  Transmission Date: 20091009
  Serious: No
  Sender: FDA-Public Use
  Company Number: None

PATIENT
  Age: 49 Year
  Sex: Female
  Weight: 72.5755 kg

DRUGS (1)
  1. ZICAM COLD TABLETS [Suspect]
     Indication: NASOPHARYNGITIS
     Dosage: 1 TABLET EVERY FOUR HOURS PO
     Route: 048
     Dates: start: 20061223, end: 20061226

REACTIONS (4)
  - AGEUSIA [None]
  - ANOSMIA [None]
  - HYPOGEUSIA [None]
  - PAROSMIA [None]
